FAERS Safety Report 12687273 (Version 1)
Quarter: 2016Q3

REPORT INFORMATION
  Report Type: Spontaneous
  Country: US (occurrence: US)
  Receive Date: 20160825
  Receipt Date: 20160825
  Transmission Date: 20161109
  Serious: Yes (Hospitalization)
  Sender: FDA-Public Use
  Company Number: US-GLAXOSMITHKLINE-US2016120270

PATIENT
  Age: 25 Year
  Sex: Female

DRUGS (2)
  1. LAMOTRIGINE TABLET [Suspect]
     Active Substance: LAMOTRIGINE
     Dosage: ONE 25 MG TABLET 1D
     Dates: start: 20160815
  2. LAMOTRIGINE TABLET [Suspect]
     Active Substance: LAMOTRIGINE
     Indication: EPILEPSY
     Dosage: 150 MG, BID
     Dates: start: 2014, end: 20160810

REACTIONS (5)
  - Drug withdrawal syndrome [Unknown]
  - Exposure during pregnancy [Unknown]
  - Dizziness [Unknown]
  - Inability to afford medication [Not Recovered/Not Resolved]
  - Drug dose omission [Recovered/Resolved]

NARRATIVE: CASE EVENT DATE: 20160811
